FAERS Safety Report 9718029 (Version 1)
Quarter: 2013Q4

REPORT INFORMATION
  Report Type: Spontaneous
  Country: US (occurrence: US)
  Receive Date: 20131125
  Receipt Date: 20131125
  Transmission Date: 20140711
  Serious: No
  Sender: FDA-Public Use
  Company Number: US-VIVUS-2013V1000445

PATIENT
  Sex: Female
  Weight: 104.42 kg

DRUGS (5)
  1. QSYMIA 3.75MG/23MG [Suspect]
     Indication: OBESITY
     Route: 048
  2. QSYMIA 7.5MG/46MG [Suspect]
     Indication: OBESITY
     Route: 048
  3. PHENTERMINE [Suspect]
     Indication: DECREASED APPETITE
     Route: 048
  4. NEXIUM [Concomitant]
     Indication: PRODUCT USED FOR UNKNOWN INDICATION
     Route: 048
  5. BENICAR HCT [Concomitant]
     Indication: PRODUCT USED FOR UNKNOWN INDICATION
     Dosage: 20MG-12.5MG
     Route: 048

REACTIONS (4)
  - Palpitations [Unknown]
  - Thirst [Unknown]
  - Insomnia [Unknown]
  - Incorrect dose administered [Unknown]
